FAERS Safety Report 5748747-9 (Version None)
Quarter: 2008Q2

REPORT INFORMATION
  Report Type: 
  Country: None (occurrence: None)
  Receive Date: 20080522
  Receipt Date: 20080509
  Transmission Date: 20081010
  Serious: Yes (Hospitalization)
  Sender: FDA-Public Use
  Company Number: 2008001110

PATIENT
  Sex: Female

DRUGS (9)
  1. ERLOTINIB (ERLOTINIB HCL) (TABLET) (ERLOTINIB HCL) [Suspect]
     Indication: NON-SMALL CELL LUNG CANCER
     Dosage: 150 MG, QD; ORAL
     Route: 048
  2. ALBUTEROL SULFATE [Concomitant]
  3. ALPRAZOLAM [Concomitant]
  4. COMPAZINE [Concomitant]
  5. DUONEB [Concomitant]
  6. HYDROCODONE (HYDROCODONE) [Concomitant]
  7. PHENERGAN [Concomitant]
  8. SIMETHICONE (DIMETICONE, ACTIVATED) [Concomitant]
  9. WELLBUTRIN [Concomitant]

REACTIONS (1)
  - CHEST PAIN [None]
